FAERS Safety Report 6652168-4 (Version None)
Quarter: 2010Q1

REPORT INFORMATION
  Report Type: 
  Country: None (occurrence: None)
  Receive Date: 20100323
  Receipt Date: 20100311
  Transmission Date: 20100710
  Serious: Yes (Other)
  Sender: FDA-Public Use
  Company Number: 238256K09USA

PATIENT
  Age: 28 Year
  Sex: Male

DRUGS (11)
  1. REBIF [Suspect]
     Indication: MULTIPLE SCLEROSIS
     Dosage: 44 MCG,3 IN 1 WEEKS, SUBCUTANEOUS
     Route: 058
     Dates: start: 20081215
  2. ARICEPT [Concomitant]
  3. CYMBALTA [Concomitant]
  4. OBETROL [Concomitant]
  5. PEPCID [Concomitant]
  6. BACLOFEN [Concomitant]
  7. FENTANYL [Concomitant]
  8. TEGRETOL [Concomitant]
  9. DEPO INJECTION (ALL OTHER THERAPEUTIC PRODUCTS) [Concomitant]
  10. ATIVIAN (LORAZEPAM) [Concomitant]
  11. OPANA (ALL OTHER THERAPEUTIC PRODUCTS) [Concomitant]

REACTIONS (2)
  - INTRACRANIAL HYPOTENSION [None]
  - PAIN [None]
